FAERS Safety Report 5274957-3 (Version None)
Quarter: 2007Q1

REPORT INFORMATION
  Report Type: 
  Country: None (occurrence: None)
  Receive Date: 20061207
  Receipt Date: 20050310
  Transmission Date: 20070707
  Serious: Yes (Other)
  Sender: FDA-Public Use
  Company Number: 2005UW03858

PATIENT
  Age: 56 Year
  Sex: Female
  Weight: 122.46 kg

DRUGS (11)
  1. TOPROL-XL [Suspect]
     Indication: HYPERTENSION
     Dosage: 50 MG PO
     Route: 048
     Dates: start: 20030101
  2. VASOTEC [Concomitant]
  3. MEPRON [Concomitant]
  4. METHOTREXATE [Concomitant]
  5. PROTONIX [Concomitant]
  6. DEXAMETHASONE [Concomitant]
  7. POTASSIUM ACETATE [Concomitant]
  8. LASIX [Concomitant]
  9. PROZAC [Concomitant]
  10. MERCAPTOPURINE [Concomitant]
  11. NO MATCH [Concomitant]

REACTIONS (4)
  - HYPERSENSITIVITY [None]
  - LIVER FUNCTION TEST ABNORMAL [None]
  - MEDICATION ERROR [None]
  - URTICARIA [None]
